FAERS Safety Report 20484445 (Version 1)
Quarter: 2022Q1

REPORT INFORMATION
  Report Type: Spontaneous
  Country: US (occurrence: US)
  Receive Date: 20220217
  Receipt Date: 20220217
  Transmission Date: 20220423
  Serious: Yes (Other)
  Sender: FDA-Public Use
  Company Number: US-PFIZER INC-202200255863

PATIENT
  Age: 61 Year
  Sex: Female

DRUGS (1)
  1. XELJANZ XR [Suspect]
     Active Substance: TOFACITINIB CITRATE
     Dosage: 11 MG
     Dates: start: 20210204

REACTIONS (5)
  - Plantar fascial fibromatosis [Unknown]
  - Hypertension [Unknown]
  - Blood cholesterol increased [Unknown]
  - Thyroid disorder [Unknown]
  - Asthma [Unknown]
